FAERS Safety Report 8196453-6 (Version None)
Quarter: 2012Q1

REPORT INFORMATION
  Report Type: 
  Country: None (occurrence: None)
  Receive Date: 20120309
  Receipt Date: 20120301
  Transmission Date: 20120608
  Serious: Yes (Hospitalization)
  Sender: FDA-Public Use
  Company Number: US-BAYER-2011-075638

PATIENT
  Age: 36 Year
  Sex: Female
  Weight: 70.295 kg

DRUGS (6)
  1. TOPAMAX [Concomitant]
     Indication: MIGRAINE
     Dosage: UNK
     Dates: start: 20080220
  2. VICODIN [Concomitant]
     Dosage: UNK
     Dates: start: 20080114
  3. MOTRIN [Concomitant]
     Dosage: UNK
     Dates: start: 20080226
  4. ALLEGRA [Concomitant]
     Dosage: UNK UNK, BID
     Dates: start: 20080321
  5. YASMIN [Suspect]
     Indication: CONTRACEPTION
     Dosage: UNK
     Dates: start: 20050101, end: 20080401
  6. AMOXICILLIN [Concomitant]
     Dosage: 875 MG, BID
     Dates: start: 20080220

REACTIONS (2)
  - INJURY [None]
  - DEEP VEIN THROMBOSIS [None]
